FAERS Safety Report 16527785 (Version 1)
Quarter: 2019Q3

REPORT INFORMATION
  Report Type: Spontaneous
  Country: US (occurrence: US)
  Receive Date: 20190703
  Receipt Date: 20190703
  Transmission Date: 20191004
  Serious: Yes (Hospitalization, Other)
  Sender: FDA-Public Use
  Company Number: US-UCBSA-2019028033

PATIENT
  Age: 62 Year
  Sex: Male

DRUGS (6)
  1. LEVETIRACETAM. [Suspect]
     Active Substance: LEVETIRACETAM
     Dosage: MAINTENANCE DOSE INCREASED TO 1500 MILLIGRAM, 2X/DAY (BID)
     Route: 042
  2. VIMPAT [Suspect]
     Active Substance: LACOSAMIDE
     Indication: STATUS EPILEPTICUS
     Dosage: 200 MILLIGRAM, 2X/DAY (BID)
  3. VIMPAT [Suspect]
     Active Substance: LACOSAMIDE
     Indication: OFF LABEL USE
  4. LEVETIRACETAM. [Suspect]
     Active Substance: LEVETIRACETAM
     Dosage: LOADED WITH 10 MILLIGRAM/KILOGRAM (1500 MILLIGRAM)
     Route: 042
  5. LEVETIRACETAM. [Suspect]
     Active Substance: LEVETIRACETAM
     Dosage: MAINTENANCE 750 MILLIGRAM, 2X/DAY (BID)
     Route: 042
  6. LEVETIRACETAM. [Suspect]
     Active Substance: LEVETIRACETAM
     Indication: PARTIAL SEIZURES
     Dosage: LOAD OF 20 MILLIGRAM/KILOGRAM (3000 MILLIGRAM)
     Route: 042

REACTIONS (2)
  - Off label use [Unknown]
  - Status epilepticus [Recovering/Resolving]
